FAERS Safety Report 5464093-5 (Version None)
Quarter: 2007Q3

REPORT INFORMATION
  Report Type: 
  Country: None (occurrence: None)
  Receive Date: 20070921
  Receipt Date: 20070912
  Transmission Date: 20080115
  Serious: Yes (Other)
  Sender: FDA-Public Use
  Company Number: US-ROCHE-511659

PATIENT
  Age: 49 Year
  Sex: Female
  Weight: 83.9 kg

DRUGS (2)
  1. XENICAL [Suspect]
     Indication: PANCREATITIS
     Route: 048
     Dates: start: 20060101
  2. VALIUM [Concomitant]
     Indication: MUSCLE SPASMS

REACTIONS (1)
  - PANCREATITIS RELAPSING [None]
